FAERS Safety Report 12936267 (Version 2)
Quarter: 2016Q4

REPORT INFORMATION
  Report Type: Spontaneous
  Country: JP (occurrence: JP)
  Receive Date: 20161114
  Receipt Date: 20161202
  Transmission Date: 20170207
  Serious: Yes (Death)
  Sender: FDA-Public Use
  Company Number: JP-JNJFOC-20161112913

PATIENT
  Age: 72 Year
  Sex: Female

DRUGS (1)
  1. DUROTEP MT [Suspect]
     Active Substance: FENTANYL
     Indication: CANCER PAIN
     Route: 062
     Dates: start: 20140930, end: 20141002

REACTIONS (3)
  - Lung neoplasm malignant [Fatal]
  - Cardiac arrest [Fatal]
  - Respiratory failure [Fatal]

NARRATIVE: CASE EVENT DATE: 2014
